FAERS Safety Report 22347133 (Version 7)
Quarter: 2023Q4

REPORT INFORMATION
  Report Type: Report from Study
  Country: US (occurrence: US)
  Receive Date: 20230520
  Receipt Date: 20231004
  Transmission Date: 20240110
  Serious: Yes (Hospitalization, Other)
  Sender: FDA-Public Use
  Company Number: US-002147023-NVSC2023US114287

PATIENT
  Sex: Male

DRUGS (4)
  1. ENTRESTO [Suspect]
     Active Substance: SACUBITRIL\VALSARTAN
     Indication: Product used for unknown indication
     Dosage: UNK (STARTED IN 2023 ABOUT A MONTH AND A HALF AGO)
     Route: 048
     Dates: start: 20230702
  2. ENTRESTO [Suspect]
     Active Substance: SACUBITRIL\VALSARTAN
     Dosage: UNK, BID
     Route: 065
  3. ENTRESTO [Suspect]
     Active Substance: SACUBITRIL\VALSARTAN
     Dosage: 0.5 DOSAGE FORM, QD (HALF A PILL ONCE A DAY, AT BEDTIME)
     Route: 065
  4. BUMEX [Concomitant]
     Active Substance: BUMETANIDE
     Indication: Product used for unknown indication
     Dosage: UNK, BID
     Route: 065

REACTIONS (8)
  - Myocardial infarction [Unknown]
  - Pleural effusion [Unknown]
  - Renal impairment [Recovering/Resolving]
  - Throat clearing [Unknown]
  - Breast pain [Unknown]
  - Wrong technique in product usage process [Unknown]
  - Product use issue [Unknown]
  - Drug ineffective [Unknown]
